FAERS Safety Report 9173939 (Version 1)
Quarter: 2013Q1

REPORT INFORMATION
  Report Type: Spontaneous
  Country: US (occurrence: None)
  Receive Date: 20130318
  Receipt Date: 20130318
  Transmission Date: 20140127
  Serious: Yes (Disabling)
  Sender: FDA-Public Use
  Company Number: None

PATIENT
  Age: 63 Year
  Sex: Female
  Weight: 83.92 kg

DRUGS (2)
  1. TAMOXIFEN CITRATE [Suspect]
     Indication: BREAST CANCER
     Route: 048
     Dates: start: 20091101, end: 20120115
  2. TAMOXIFEN CITRATE [Suspect]
     Indication: PROPHYLAXIS
     Route: 048
     Dates: start: 20091101, end: 20120115

REACTIONS (4)
  - Cognitive disorder [None]
  - Memory impairment [None]
  - Mental impairment [None]
  - Disturbance in attention [None]
